FAERS Safety Report 4297454-0 (Version None)
Quarter: 2004Q1

REPORT INFORMATION
  Report Type: 
  Country: None (occurrence: None)
  Receive Date: 20040213
  Receipt Date: 20031201
  Transmission Date: 20041129
  Serious: Yes (Other)
  Sender: FDA-Public Use
  Company Number: PHEH2003US10368

PATIENT
  Age: 61 Year
  Sex: Female

DRUGS (1)
  1. DIOVAN [Suspect]
     Indication: HYPERTENSION
     Dosage: ORAL
     Route: 048
     Dates: start: 20000101, end: 20020101

REACTIONS (4)
  - ANGIONEUROTIC OEDEMA [None]
  - DIZZINESS [None]
  - DYSPNOEA [None]
  - SWELLING FACE [None]
